FAERS Safety Report 23662316 (Version 1)
Quarter: 2024Q1

REPORT INFORMATION
  Report Type: Spontaneous
  Country: US (occurrence: None)
  Receive Date: 20240321
  Receipt Date: 20240321
  Transmission Date: 20240410
  Serious: Yes (Other)
  Sender: FDA-Public Use
  Company Number: None

PATIENT
  Age: 63 Year
  Sex: Female
  Weight: 73.94 kg

DRUGS (4)
  1. REGADENOSON [Suspect]
     Active Substance: REGADENOSON
  2. norvasc 5mg/day [Concomitant]
  3. medical marijuana (indica only)for joint pain and spinal/knee injuries [Concomitant]
  4. VITAMINS [Concomitant]
     Active Substance: VITAMINS

REACTIONS (8)
  - Anxiety [None]
  - Tremor [None]
  - Feeling cold [None]
  - Hyperhidrosis [None]
  - Vomiting projectile [None]
  - Diarrhoea [None]
  - Pollakiuria [None]
  - Infusion related reaction [None]

NARRATIVE: CASE EVENT DATE: 20240320
